FAERS Safety Report 18695850 (Version 4)
Quarter: 2021Q1

REPORT INFORMATION
  Report Type: Spontaneous
  Country: PL (occurrence: PL)
  Receive Date: 20210104
  Receipt Date: 20210125
  Transmission Date: 20210419
  Serious: Yes (Hospitalization, Other)
  Sender: FDA-Public Use
  Company Number: PL-PFIZER INC-2020520861

PATIENT
  Age: 86 Year
  Sex: Female

DRUGS (10)
  1. CETIRIZINE [Concomitant]
     Active Substance: CETIRIZINE HYDROCHLORIDE
     Indication: RASH ERYTHEMATOUS
     Dosage: UNK
     Route: 048
  2. CHLOROQUINE. [Concomitant]
     Active Substance: CHLOROQUINE
     Indication: COVID-19
     Dosage: UNK
     Dates: start: 202004
  3. PIPERACILLIN/TAZOBACTAM [Suspect]
     Active Substance: PIPERACILLIN SODIUM\TAZOBACTAM SODIUM
     Indication: COVID-19
     Dosage: UNK
     Dates: start: 202004
  4. AZITHROMYCIN ANHYDROUS. [Suspect]
     Active Substance: AZITHROMYCIN ANHYDROUS
     Indication: COVID-19
     Dosage: UNK
     Route: 051
     Dates: start: 202004
  5. OXYGEN. [Concomitant]
     Active Substance: OXYGEN
     Indication: COVID-19
     Dosage: UNK
     Dates: start: 202004
  6. CIPROFLOXACIN. [Suspect]
     Active Substance: CIPROFLOXACIN
     Indication: COVID-19
     Dosage: UNK
     Dates: start: 202004, end: 202005
  7. LOPINAVIR + RITONAVIR [Concomitant]
     Active Substance: LOPINAVIR\RITONAVIR
     Indication: COVID-19
     Dosage: UNK
     Dates: start: 202004
  8. CILASTATIN/IMIPENEM [Suspect]
     Active Substance: CILASTATIN SODIUM\IMIPENEM
     Indication: COVID-19
     Dosage: UNK
     Dates: start: 202004, end: 202005
  9. LOW?MOLECULAR?WEIGHT HEPARIN CALCIUM [Concomitant]
     Active Substance: HEPARIN CALCIUM
     Dosage: UNK (LOW?MOLECULAR?WEIGHT HEPARIN ? DRUGS WHICH THE PATIENT WAS RECEIVING ON A REGULAR BASIS)
     Route: 058
  10. CLOBETASOL [Concomitant]
     Active Substance: CLOBETASOL
     Indication: RASH ERYTHEMATOUS
     Dosage: UNK
     Route: 061

REACTIONS (10)
  - Erythema [Recovered/Resolved]
  - Skin oedema [Recovered/Resolved]
  - Skin exfoliation [Recovered/Resolved]
  - Skin atrophy [Recovered/Resolved]
  - Off label use [Unknown]
  - Inflammatory marker increased [Unknown]
  - Subcutaneous abscess [Recovered/Resolved]
  - Macule [Recovered/Resolved]
  - Clostridium difficile infection [Unknown]
  - Rash erythematous [Recovered/Resolved]

NARRATIVE: CASE EVENT DATE: 202004
